FAERS Safety Report 4728034-8 (Version None)
Quarter: 2005Q3

REPORT INFORMATION
  Report Type: 
  Country: None (occurrence: None)
  Receive Date: 20050725
  Receipt Date: 20050408
  Transmission Date: 20060218
  Serious: No
  Sender: FDA-Public Use
  Company Number: USA050495274

PATIENT
  Age: 39 Year
  Sex: Male

DRUGS (1)
  1. STRATTERA [Suspect]
     Indication: ATTENTION DEFICIT/HYPERACTIVITY DISORDER
     Dosage: 80 MG DAY
     Dates: start: 20050101, end: 20050408

REACTIONS (3)
  - EPIDIDYMITIS [None]
  - GROIN PAIN [None]
  - URINARY HESITATION [None]
